FAERS Safety Report 15341756 (Version 1)
Quarter: 2018Q3

REPORT INFORMATION
  Report Type: Spontaneous
  Country: GB (occurrence: GB)
  Receive Date: 20180901
  Receipt Date: 20180901
  Transmission Date: 20181010
  Serious: Yes (Hospitalization)
  Sender: FDA-Public Use
  Company Number: GB-ACCORD-071273

PATIENT
  Age: 22 Year
  Sex: Female

DRUGS (8)
  1. CETIRIZINE [Concomitant]
     Active Substance: CETIRIZINE HYDROCHLORIDE
     Indication: SEASONAL ALLERGY
     Dosage: EACH DAY. NOT TAKING NOW.
  2. SALBUTAMOL [Concomitant]
     Active Substance: ALBUTEROL
     Dosage: 100MICROGRAMS/DOSE .?ONE OR TWO PUFFS TO BE INHALED FOUR TIMES A DAY WHEN REQUIRED.
     Route: 055
  3. DICLOFENAC POTASSIUM. [Suspect]
     Active Substance: DICLOFENAC POTASSIUM
     Indication: PRODUCT USED FOR UNKNOWN INDICATION
  4. RELVAR ELLIPTA [Concomitant]
     Active Substance: FLUTICASONE FUROATE\VILANTEROL TRIFENATATE
     Dosage: 92MICROGRAMS/DOSE/22MICROGRAMS/DOSE.
     Route: 055
  5. AMITRIPTYLINE [Suspect]
     Active Substance: AMITRIPTYLINE
     Indication: FACIAL NEURALGIA
     Dosage: ALSO RECEIVED 10 MG FOR 1 MONTH
  6. CODEINE [Concomitant]
     Active Substance: CODEINE
     Indication: NEURALGIA
     Dosage: ONE OR TWO TO BE TAKEN EVERY FOUR HOURS WHEN NECESSARY
  7. ACICLOVIR [Concomitant]
     Active Substance: ACYCLOVIR
     Indication: ECZEMA HERPETICUM
  8. RANITIDINE. [Concomitant]
     Active Substance: RANITIDINE
     Dosage: ONE TO BE TAKEN AT NIGHT

REACTIONS (1)
  - Rectal haemorrhage [Unknown]
